FAERS Safety Report 9729044 (Version 1)
Quarter: 2013Q4

REPORT INFORMATION
  Report Type: Spontaneous
  Country: US (occurrence: US)
  Receive Date: 20131204
  Receipt Date: 20131204
  Transmission Date: 20140711
  Serious: Yes (Hospitalization)
  Sender: FDA-Public Use
  Company Number: US-BAYER-2013-145566

PATIENT
  Age: 35 Year
  Sex: Female
  Weight: 92.97 kg

DRUGS (8)
  1. YASMIN [Suspect]
     Dosage: UNK
  2. YAZ [Suspect]
     Dosage: UNK
  3. OCELLA [Suspect]
     Dosage: UNK
  4. KETOROLAC [Concomitant]
     Dosage: 10 MG, UNK
  5. HYDROCODONE W/ACETAMINOPHEN [Concomitant]
     Dosage: 7.5/500MG
  6. ATENOLOL [Concomitant]
     Dosage: 25 MG, UNK
  7. LORTAB [Concomitant]
     Indication: PAIN
     Dosage: UNK, UNK, AS NEEDED
  8. COLACE [Concomitant]
     Dosage: UNK

REACTIONS (1)
  - Deep vein thrombosis [Recovered/Resolved]
